FAERS Safety Report 8896173 (Version 4)
Quarter: 2013Q3

REPORT INFORMATION
  Report Type: Report from Study
  Country: US (occurrence: US)
  Receive Date: 20121108
  Receipt Date: 20130812
  Transmission Date: 20140515
  Serious: Yes (Other)
  Sender: FDA-Public Use
  Company Number: PHEH2012US013991

PATIENT
  Age: 56 Year
  Sex: Female
  Weight: 66.8 kg

DRUGS (14)
  1. GILENYA [Suspect]
     Indication: MULTIPLE SCLEROSIS
     Dosage: 0.5 MG, QD
     Route: 048
     Dates: start: 20120208, end: 20120423
  2. AMARYL [Concomitant]
     Indication: DIABETES MELLITUS
     Dosage: 0.5 DF, QD
  3. TRILIPIX [Concomitant]
     Indication: BLOOD CHOLESTEROL INCREASED
     Dosage: 135 MG, QD
  4. BACLOFEN [Concomitant]
     Indication: MUSCLE SPASMS
     Dosage: 0.5 DF, BID
     Route: 048
  5. COLACE [Concomitant]
     Indication: CONSTIPATION
     Dosage: 100 MG, BID
     Route: 048
  6. RESTASIS [Concomitant]
     Indication: GLAUCOMA
  7. ADVIL COLD [Concomitant]
     Dosage: 2 DF, PRN
     Route: 048
  8. MULTI-VIT [Concomitant]
     Dosage: 1 DF, QD
     Route: 048
  9. AMITRIPTYLENE [Concomitant]
     Indication: PARAESTHESIA
     Dosage: 25 MG, UNK
  10. DEXILANT [Concomitant]
     Dosage: 50 MG, QD
     Route: 048
  11. DOCUSATE [Concomitant]
     Dosage: 100 MG, BID
  12. LIPITOR [Concomitant]
     Dosage: 40 MG, UNK
  13. TRIAMTERENE AND HYDROCHLOROTHIAZID [Concomitant]
     Dosage: HYDROCHLOROTHIAZIDE 37.5 MG, TRIAMTERENE 25 MG, UNK
  14. NUVIGIL [Concomitant]
     Indication: FATIGUE

REACTIONS (1)
  - Abdominal pain [Recovered/Resolved]
